FAERS Safety Report 8606446-X (Version None)
Quarter: 2012Q3

REPORT INFORMATION
  Report Type: 
  Country: None (occurrence: None)
  Receive Date: 20120809
  Receipt Date: 20120809
  Transmission Date: 20120928
  Serious: Yes (Hospitalization)
  Sender: FDA-Public Use
  Company Number: None

PATIENT
  Sex: Female
  Weight: 99.5 kg

DRUGS (2)
  1. TAXOL [Suspect]
     Dosage: 282 MG
     Dates: start: 20120712
  2. CISPLATIN [Suspect]
     Dates: start: 20120712

REACTIONS (2)
  - CONSTIPATION [None]
  - VOMITING [None]
